FAERS Safety Report 18287806 (Version 1)
Quarter: 2020Q3

REPORT INFORMATION
  Report Type: Spontaneous
  Country: US (occurrence: US)
  Receive Date: 20200918
  Receipt Date: 20200918
  Transmission Date: 20201103
  Serious: Yes (Death)
  Sender: FDA-Public Use
  Company Number: None

PATIENT
  Age: 75 Year
  Sex: Male

DRUGS (15)
  1. FERROUS SULFATE. [Concomitant]
     Active Substance: FERROUS SULFATE
  2. PREDNISONE. [Concomitant]
     Active Substance: PREDNISONE
  3. CLINDAMYCIN. [Concomitant]
     Active Substance: CLINDAMYCIN
  4. LIPITOR [Concomitant]
     Active Substance: ATORVASTATIN CALCIUM
  5. VITAMIN D3 [Concomitant]
     Active Substance: CHOLECALCIFEROL
  6. RANOLAZINE ER [Concomitant]
     Active Substance: RANOLAZINE
  7. ALLOPURINOL. [Concomitant]
     Active Substance: ALLOPURINOL
  8. AMBRISENTAN [Suspect]
     Active Substance: AMBRISENTAN
     Indication: PULMONARY ARTERIAL HYPERTENSION
     Route: 048
  9. NORVASC [Concomitant]
     Active Substance: AMLODIPINE BESYLATE
  10. POTASSIUM CHLOR ER [Concomitant]
  11. COLCRYS [Concomitant]
     Active Substance: COLCHICINE
  12. LASIX [Concomitant]
     Active Substance: FUROSEMIDE
  13. NORCO [Concomitant]
     Active Substance: ACETAMINOPHEN\HYDROCODONE BITARTRATE
  14. PROAIR HFA [Concomitant]
     Active Substance: ALBUTEROL SULFATE
  15. TRAMADOL. [Concomitant]
     Active Substance: TRAMADOL

REACTIONS (1)
  - Death [None]

NARRATIVE: CASE EVENT DATE: 20200918
